FAERS Safety Report 9725999 (Version 1)
Quarter: 2013Q4

REPORT INFORMATION
  Report Type: Spontaneous
  Country: CH (occurrence: None)
  Receive Date: 20131118
  Receipt Date: 20131118
  Transmission Date: 20140711
  Serious: Yes (Other)
  Sender: FDA-Public Use
  Company Number: 2013036977

PATIENT
  Age: 37 Year
  Sex: Female

DRUGS (1)
  1. PRIVIGEN [Suspect]
     Indication: HYPOGAMMAGLOBULINAEMIA
     Dosage: CYCLICAL
     Route: 042
     Dates: start: 20121107, end: 20130121

REACTIONS (14)
  - Asthma [None]
  - Viral upper respiratory tract infection [None]
  - Ear pain [None]
  - Myalgia [None]
  - Nasal congestion [None]
  - Sinusitis [None]
  - Secretion discharge [None]
  - Lymph node pain [None]
  - Rhinitis [None]
  - Ear infection [None]
  - Influenza like illness [None]
  - Blood lactate dehydrogenase increased [None]
  - Blood creatine phosphokinase increased [None]
  - Malaise [None]
